FAERS Safety Report 7096677-5 (Version None)
Quarter: 2010Q4

REPORT INFORMATION
  Report Type: 
  Country: None (occurrence: None)
  Receive Date: 20101003
  Receipt Date: 20101025
  Transmission Date: 20110411
  Serious: Yes (Hospitalization, Disabling)
  Sender: FDA-Public Use
  Company Number: 2008JP001731

PATIENT
  Age: 26 Year
  Sex: Female
  Weight: 55 kg

DRUGS (29)
  1. TACROLIMUS [Suspect]
     Indication: LUPUS NEPHRITIS
     Dosage: 3 MG, ORAL, 3 MG, ORAL, 1 MG, ORAL, 2 MG, ORAL, 2.5 MG, ORAL
     Route: 048
     Dates: start: 20070720, end: 20070729
  2. TACROLIMUS [Suspect]
     Indication: LUPUS NEPHRITIS
     Dosage: 3 MG, ORAL, 3 MG, ORAL, 1 MG, ORAL, 2 MG, ORAL, 2.5 MG, ORAL
     Route: 048
     Dates: start: 20070803, end: 20070816
  3. TACROLIMUS [Suspect]
     Indication: LUPUS NEPHRITIS
     Dosage: 3 MG, ORAL, 3 MG, ORAL, 1 MG, ORAL, 2 MG, ORAL, 2.5 MG, ORAL
     Route: 048
     Dates: start: 20070817, end: 20070920
  4. TACROLIMUS [Suspect]
     Indication: LUPUS NEPHRITIS
     Dosage: 3 MG, ORAL, 3 MG, ORAL, 1 MG, ORAL, 2 MG, ORAL, 2.5 MG, ORAL
     Route: 048
     Dates: start: 20070921, end: 20071018
  5. TACROLIMUS [Suspect]
     Indication: LUPUS NEPHRITIS
     Dosage: 3 MG, ORAL, 3 MG, ORAL, 1 MG, ORAL, 2 MG, ORAL, 2.5 MG, ORAL
     Route: 048
     Dates: start: 20071019
  6. PREDNISOLONE [Suspect]
     Indication: LUPUS NEPHRITIS
     Dosage: SEE IMAGE
     Route: 048
     Dates: end: 20070817
  7. PREDNISOLONE [Suspect]
     Indication: LUPUS NEPHRITIS
     Dosage: SEE IMAGE
     Route: 048
     Dates: start: 20070818, end: 20070921
  8. PREDNISOLONE [Suspect]
     Indication: LUPUS NEPHRITIS
     Dosage: SEE IMAGE
     Route: 048
     Dates: start: 20070922, end: 20071019
  9. PREDNISOLONE [Suspect]
     Indication: LUPUS NEPHRITIS
     Dosage: SEE IMAGE
     Route: 048
     Dates: start: 20071020, end: 20071214
  10. PREDNISOLONE [Suspect]
     Indication: LUPUS NEPHRITIS
     Dosage: SEE IMAGE
     Route: 048
     Dates: start: 20071215, end: 20080208
  11. PREDNISOLONE [Suspect]
     Indication: LUPUS NEPHRITIS
     Dosage: SEE IMAGE
     Route: 048
     Dates: start: 20080209, end: 20080904
  12. PREDNISOLONE [Suspect]
     Indication: LUPUS NEPHRITIS
     Dosage: SEE IMAGE
     Route: 048
     Dates: start: 20080905, end: 20090305
  13. PREDNISOLONE [Suspect]
     Indication: LUPUS NEPHRITIS
     Dosage: SEE IMAGE
     Route: 048
     Dates: start: 20090306, end: 20090625
  14. PREDNISOLONE [Suspect]
     Indication: LUPUS NEPHRITIS
     Dosage: SEE IMAGE
     Route: 048
     Dates: start: 20090626, end: 20091016
  15. PREDNISOLONE [Suspect]
     Indication: LUPUS NEPHRITIS
     Dosage: SEE IMAGE
     Route: 048
     Dates: start: 20091017, end: 20100402
  16. PREDNISOLONE [Suspect]
     Indication: LUPUS NEPHRITIS
     Dosage: SEE IMAGE
     Route: 048
     Dates: start: 20100423
  17. SLOW-K [Concomitant]
  18. ALFAROL (ALFACALCIDOL) [Concomitant]
  19. PRAVASTATIN [Concomitant]
  20. KEISHIBUKURYOUGAN (HERBAL EXTRACT NOS) [Concomitant]
  21. PERSANTIN [Concomitant]
  22. LAC B (LACTOBACILLUS BIFIDUS, LYOPHILIZED) [Concomitant]
  23. TOMIRON (CEFTERAM PIVOXIL) [Concomitant]
  24. KEISHITOU (HERBAL EXTRACT NOS) [Concomitant]
  25. MAOUTOU (HERBAL EXTRACT NOS) [Concomitant]
  26. ANAVAN (DICLOFENAC SODIUM) [Concomitant]
  27. ACTONEL [Concomitant]
  28. TOKISYAKUYAKUSAN (HERBAL EXTRACT NOS) [Concomitant]
  29. PERSANTIN [Concomitant]

REACTIONS (7)
  - ARTHRALGIA [None]
  - CYSTITIS [None]
  - DIARRHOEA [None]
  - NASOPHARYNGITIS [None]
  - OSTEONECROSIS [None]
  - UPPER RESPIRATORY TRACT INFLAMMATION [None]
  - URINARY TRACT INFECTION [None]
